FAERS Safety Report 5386351-5 (Version None)
Quarter: 2007Q3

REPORT INFORMATION
  Report Type: 
  Country: None (occurrence: None)
  Receive Date: 20070713
  Receipt Date: 20070710
  Transmission Date: 20080115
  Serious: Yes (Death)
  Sender: FDA-Public Use
  Company Number: ES-BRISTOL-MYERS SQUIBB COMPANY-13836903

PATIENT
  Sex: Male

DRUGS (4)
  1. REYATAZ [Suspect]
     Indication: HIV INFECTION
     Route: 048
     Dates: start: 20070101
  2. SULFADOXINE [Suspect]
     Indication: TOXOPLASMOSIS
     Dates: start: 20070101
  3. NORVIR [Concomitant]
  4. TRUVADA [Concomitant]

REACTIONS (1)
  - HEPATITIS FULMINANT [None]
